FAERS Safety Report 9775621 (Version 1)
Quarter: 2013Q4

REPORT INFORMATION
  Report Type: Spontaneous
  Country: IT (occurrence: IT)
  Receive Date: 20131220
  Receipt Date: 20131220
  Transmission Date: 20140711
  Serious: Yes (Hospitalization)
  Sender: FDA-Public Use
  Company Number: PHHY2012IT072238

PATIENT
  Age: 33 Year
  Sex: Male

DRUGS (7)
  1. ANAFRANIL [Suspect]
     Dosage: UNK
     Dates: start: 20120713, end: 20120713
  2. OLANZAPINE [Suspect]
     Dosage: UNK
     Dates: start: 20120713, end: 20120713
  3. RIVOTRIL [Suspect]
     Dosage: UNK
     Dates: start: 20120713, end: 20120713
  4. DEPAKIN [Suspect]
     Dosage: UNK
     Dates: start: 20120713, end: 20120713
  5. HALDOL [Suspect]
     Dosage: UNK
     Dates: start: 20120713, end: 20120713
  6. LANTANON [Suspect]
     Dosage: UNK
     Dates: start: 20120713, end: 20120713
  7. TRITTICO [Suspect]
     Dosage: UNK
     Dates: start: 20120713, end: 20120713

REACTIONS (5)
  - Snoring [Recovering/Resolving]
  - Sopor [Recovering/Resolving]
  - Speech disorder [Recovering/Resolving]
  - Tachycardia [Recovering/Resolving]
  - Drug abuse [Recovering/Resolving]
